FAERS Safety Report 4617457-3 (Version None)
Quarter: 2005Q1

REPORT INFORMATION
  Report Type: 
  Country: None (occurrence: None)
  Receive Date: 20050322
  Receipt Date: 20050317
  Transmission Date: 20050727
  Serious: Yes (Other)
  Sender: FDA-Public Use
  Company Number: 004407

PATIENT
  Age: 55 Year
  Sex: Female

DRUGS (8)
  1. MEDROXYPROGESTERONE ACETATE [Suspect]
     Dates: start: 19981216, end: 19991201
  2. FEMHRT [Suspect]
     Dates: start: 20021001, end: 20030901
  3. MEDROXYPROGESTERONE ACETATE [Suspect]
     Dates: start: 19930901, end: 20040224
  4. PREMARIN [Suspect]
     Dates: start: 19960716, end: 19970701
  5. PROVERA [Suspect]
     Dates: start: 19960716, end: 19970701
  6. PROVERA [Suspect]
     Dates: start: 19991206, end: 20021001
  7. PREMPHASE (PREMARIN;CYCRIN 14/14) [Suspect]
     Dates: start: 19980731, end: 19981201
  8. ESTRATEST H.S. [Suspect]
     Dates: start: 19981216, end: 20021001

REACTIONS (1)
  - BREAST CANCER FEMALE [None]
